FAERS Safety Report 13454892 (Version 8)
Quarter: 2018Q4

REPORT INFORMATION
  Report Type: Spontaneous
  Country: US (occurrence: US)
  Receive Date: 20170418
  Receipt Date: 20181204
  Transmission Date: 20190204
  Serious: Yes (Other)
  Sender: FDA-Public Use
  Company Number: US-PFIZER INC-2017161847

PATIENT
  Age: 69 Year
  Sex: Male
  Weight: 74.84 kg

DRUGS (3)
  1. LYRICA [Suspect]
     Active Substance: PREGABALIN
     Indication: NEURALGIA
     Dosage: 100 MG, 2X/DAY
     Dates: start: 20170415
  2. LYRICA [Suspect]
     Active Substance: PREGABALIN
     Dosage: 100 MG, 2X/DAY
     Route: 048
     Dates: start: 20181123
  3. LYRICA [Suspect]
     Active Substance: PREGABALIN
     Indication: POLYNEUROPATHY
     Dosage: 100 MG, 2X/DAY
     Route: 048

REACTIONS (5)
  - Amnesia [Unknown]
  - Dysphemia [Unknown]
  - Drug ineffective [Not Recovered/Not Resolved]
  - Withdrawal syndrome [Unknown]
  - Ankle fracture [Unknown]
